FAERS Safety Report 4492403-4 (Version None)
Quarter: 2004Q4

REPORT INFORMATION
  Report Type: 
  Country: None (occurrence: None)
  Receive Date: 20041102
  Receipt Date: 20041102
  Transmission Date: 20050328
  Serious: No
  Sender: FDA-Public Use
  Company Number: None

PATIENT
  Age: 87 Year
  Sex: Female
  Weight: 75.7507 kg

DRUGS (3)
  1. PERCOCET [Suspect]
     Indication: INTERVERTEBRAL DISC DEGENERATION
     Dosage: ONE PO QID
     Route: 048
  2. PERCOCET [Suspect]
     Indication: NEUROPATHY
     Dosage: ONE PO QID
     Route: 048
  3. PERCOCET [Suspect]
     Indication: SPINAL COLUMN STENOSIS
     Dosage: ONE PO QID
     Route: 048

REACTIONS (2)
  - DRUG TOLERANCE DECREASED [None]
  - PHARMACEUTICAL PRODUCT COMPLAINT [None]
